FAERS Safety Report 25526029 (Version 1)
Quarter: 2025Q3

REPORT INFORMATION
  Report Type: Spontaneous
  Country: US (occurrence: US)
  Receive Date: 20250707
  Receipt Date: 20250707
  Transmission Date: 20251021
  Serious: Yes (Other)
  Sender: AMGEN
  Company Number: US-AMGEN-USASP2025130739

PATIENT
  Age: 9 Year
  Sex: Female

DRUGS (3)
  1. ETANERCEPT [Suspect]
     Active Substance: ETANERCEPT
     Indication: Pustular psoriasis
     Route: 065
  2. ETANERCEPT [Suspect]
     Active Substance: ETANERCEPT
     Indication: Off label use
  3. ADALIMUMAB [Suspect]
     Active Substance: ADALIMUMAB
     Indication: Pustular psoriasis
     Route: 065

REACTIONS (8)
  - Mixed connective tissue disease [Recovering/Resolving]
  - Chronic cutaneous lupus erythematosus [Recovering/Resolving]
  - Scleroderma [Recovering/Resolving]
  - Psoriasis [Recovering/Resolving]
  - Lichen planus [Recovering/Resolving]
  - Microcytic anaemia [Unknown]
  - Drug ineffective for unapproved indication [Unknown]
  - Off label use [Unknown]
